FAERS Safety Report 24037679 (Version 2)
Quarter: 2024Q3

REPORT INFORMATION
  Report Type: Report from Study
  Country: JP (occurrence: JP)
  Receive Date: 20240702
  Receipt Date: 20240906
  Transmission Date: 20241017
  Serious: Yes (Other)
  Sender: JOHNSON AND JOHNSON
  Company Number: JP-JNJFOC-20240673791

PATIENT
  Age: 30 Year
  Sex: Female

DRUGS (17)
  1. BOSENTAN [Suspect]
     Active Substance: BOSENTAN
     Indication: Prophylaxis
     Dosage: IN THE MORNING
     Route: 048
     Dates: start: 20210125, end: 20210304
  2. BOSENTAN [Suspect]
     Active Substance: BOSENTAN
     Indication: Systemic scleroderma
     Dosage: IN THE MORNING AND EVENING
     Route: 048
     Dates: start: 20210305, end: 20220716
  3. BOSENTAN [Suspect]
     Active Substance: BOSENTAN
     Dosage: IN THE MORNING AND EVENING
     Route: 048
     Dates: start: 20221108, end: 20230117
  4. BOSENTAN [Suspect]
     Active Substance: BOSENTAN
     Dosage: 62.5MG IN THE MORNING AND 125MG IN THE EVENING
     Route: 048
     Dates: start: 20230118, end: 20230605
  5. BOSENTAN [Suspect]
     Active Substance: BOSENTAN
     Dosage: IN THE MORNING AND EVENING
     Route: 048
     Dates: start: 20230606
  6. VONOPRAZAN FUMARATE [Concomitant]
     Active Substance: VONOPRAZAN FUMARATE
     Indication: Gastrooesophageal reflux disease
     Route: 048
     Dates: start: 2020
  7. AZULFIDINE EN-TABS [Concomitant]
     Active Substance: SULFASALAZINE
     Indication: Rheumatoid arthritis
     Route: 048
     Dates: start: 2020
  8. ALLOID G [Concomitant]
     Active Substance: SODIUM ALGINATE
     Indication: Gastrooesophageal reflux disease
     Route: 048
     Dates: start: 20210123, end: 20220427
  9. ACTEMRA [Concomitant]
     Active Substance: TOCILIZUMAB
     Indication: Rheumatoid arthritis
     Route: 041
     Dates: start: 20210125, end: 20220926
  10. KEVZARA [Concomitant]
     Active Substance: SARILUMAB
     Indication: Rheumatoid arthritis
     Route: 058
     Dates: start: 20221025, end: 20221025
  11. PREDONINE [Concomitant]
     Active Substance: PREDNISOLONE
     Indication: Systemic scleroderma
     Dosage: 5-20MG
     Route: 048
     Dates: start: 202007
  12. PREDONINE [Concomitant]
     Active Substance: PREDNISOLONE
     Dosage: 5-30MG
     Route: 048
  13. RITUXAN [Concomitant]
     Active Substance: RITUXIMAB
     Indication: Systemic scleroderma
     Route: 041
     Dates: start: 20230810
  14. RITUXAN [Concomitant]
     Active Substance: RITUXIMAB
     Indication: Sclerema
  15. ADCIRCA [Concomitant]
     Active Substance: TADALAFIL
     Indication: Systemic scleroderma
     Route: 048
     Dates: start: 20231003, end: 20231017
  16. BRODALUMAB [Concomitant]
     Active Substance: BRODALUMAB
     Indication: Systemic scleroderma
     Dosage: ADMINISTERED AT FIRST TIME, 1 WEEK LATER, 2 WEEKS LATER, THEN ADMINISTERED EVERY 2 WEEKS
     Route: 058
     Dates: start: 20230404, end: 20230627
  17. OFEV [Concomitant]
     Active Substance: NINTEDANIB
     Indication: Interstitial lung disease
     Dosage: 100-150MG
     Route: 048
     Dates: start: 20230314

REACTIONS (3)
  - Sclerema [Not Recovered/Not Resolved]
  - Interstitial lung disease [Not Recovered/Not Resolved]
  - Pain [Recovered/Resolved]

NARRATIVE: CASE EVENT DATE: 20220801
